FAERS Safety Report 7724594-3 (Version None)
Quarter: 2011Q3

REPORT INFORMATION
  Report Type: 
  Country: None (occurrence: None)
  Receive Date: 20110901
  Receipt Date: 20110829
  Transmission Date: 20111222
  Serious: No
  Sender: FDA-Public Use
  Company Number: US-PFIZER INC-2011202074

PATIENT
  Sex: Female
  Weight: 115.65 kg

DRUGS (18)
  1. DYNACIRC [Suspect]
     Dosage: UNK
     Route: 048
  2. CIPROFLOXACIN [Suspect]
     Dosage: UNK
  3. NEXIUM [Concomitant]
     Indication: ABDOMINAL DISCOMFORT
     Dosage: 40 MG, DAILY
     Route: 048
  4. AZITHROMYCIN [Suspect]
     Dosage: UNK
  5. AUGMENTIN '125' [Suspect]
     Indication: ANTIBIOTIC THERAPY
     Dosage: UNK
  6. LEVOTHYROXINE [Concomitant]
     Indication: THYROID DISORDER
     Dosage: UNK
  7. FLOVENT [Concomitant]
     Indication: ASTHMA
     Dosage: UNK
  8. ALBUTEROL SULFATE AUTOHALER [Concomitant]
     Indication: ASTHMA
     Dosage: UNK
  9. ALLOPURINOL [Concomitant]
     Indication: GOUT
     Dosage: 200 MG, DAILY
     Route: 048
  10. LORAZEPAM [Concomitant]
     Indication: PAIN
     Dosage: 2 MG, AS NEEDED
     Route: 048
  11. THYROID TAB [Concomitant]
     Indication: THYROID DISORDER
     Dosage: 90 MG, DAILY
     Route: 048
  12. BENICAR [Concomitant]
     Indication: HYPERTENSION
     Dosage: 45 MG, DAILY
     Route: 048
  13. PROPOXYPHENE HCL AND ACETAMINOPHEN [Suspect]
     Indication: BACK DISORDER
     Dosage: 100/650 MG, 2X/DAY
     Route: 048
  14. ALISKIREN [Suspect]
     Indication: BLOOD PRESSURE ABNORMAL
     Dosage: 300 MG, DAILY
     Route: 048
     Dates: start: 20110801, end: 20110801
  15. LIDOCAINE HYDROCHLORIDE [Suspect]
     Dosage: UNK
  16. DARVON [Suspect]
     Indication: PAIN
     Dosage: UNK
  17. PREMARIN [Concomitant]
     Indication: HORMONE REPLACEMENT THERAPY
     Dosage: 0.3MG AND 0.625MG, DAILY
     Route: 048
  18. ZOLOFT [Concomitant]
     Indication: BLOOD PRESSURE ABNORMAL
     Dosage: 25 MG, DAILY
     Route: 048

REACTIONS (3)
  - PHARYNGEAL OEDEMA [None]
  - HYPERSENSITIVITY [None]
  - PRURITUS [None]
